FAERS Safety Report 4582078-8 (Version None)
Quarter: 2005Q1

REPORT INFORMATION
  Report Type: 
  Country: None (occurrence: None)
  Receive Date: 20050119
  Receipt Date: 20040621
  Transmission Date: 20050727
  Serious: Yes (Hospitalization)
  Sender: FDA-Public Use
  Company Number: A03200402003

PATIENT
  Age: 74 Year
  Sex: Male
  Weight: 88.4514 kg

DRUGS (11)
  1. PLAVIX [Suspect]
     Indication: CORONARY ARTERY DISEASE
     Dosage: 75 MG QD- ORAL
     Route: 048
     Dates: start: 20020601
  2. ACETYLSALICYLIC ACID SRT [Concomitant]
  3. OMEPRAZOLE [Concomitant]
  4. CILOSTAZOL [Concomitant]
  5. SIMVASTATIN [Concomitant]
  6. GEMFIBROZIL [Concomitant]
  7. FOSINOPRIL [Concomitant]
  8. AMLODIPINE [Concomitant]
  9. METOPROLOL [Concomitant]
  10. INSULIN [Concomitant]
  11. MULTI-VITAMIN [Concomitant]

REACTIONS (3)
  - DIARRHOEA [None]
  - HAEMORRHAGIC DIATHESIS [None]
  - MYOCARDIAL INFARCTION [None]
